FAERS Safety Report 25533305 (Version 2)
Quarter: 2025Q3

REPORT INFORMATION
  Report Type: Spontaneous
  Country: EU (occurrence: EU)
  Receive Date: 20250709
  Receipt Date: 20250724
  Transmission Date: 20251021
  Serious: Yes (Other)
  Sender: BIOCON
  Company Number: EU-002147023-NVSC2025DE099555

PATIENT
  Age: 55 Year
  Sex: Female
  Weight: 50 kg

DRUGS (4)
  1. ROSUVASTATIN [Suspect]
     Active Substance: ROSUVASTATIN
     Indication: Blood cholesterol increased
  2. TASIGNA [Suspect]
     Active Substance: NILOTINIB
     Indication: Chronic myeloid leukaemia
     Dosage: 150 MILLIGRAMS (MG), FOUR TIMES A DAY (QID) (2-0-2)
     Dates: start: 2020
  3. TASIGNA [Suspect]
     Active Substance: NILOTINIB
     Dosage: 200 MILLIGRAMS (MG), FOUR TIMES A DAY (QID) (2-0-2)
     Dates: start: 2020
  4. TASIGNA [Suspect]
     Active Substance: NILOTINIB
     Dosage: 150 MILLIGRAMS (MG), FOUR TIMES A DAY (QID) (2-0-2)

REACTIONS (9)
  - Corneal epithelium defect [Unknown]
  - Mucosal disorder [Unknown]
  - Lipids increased [Unknown]
  - Diarrhoea [Unknown]
  - Corneal disorder [Unknown]
  - Blood cholesterol increased [Unknown]
  - Hepatic enzyme increased [Unknown]
  - Inappropriate schedule of product administration [Unknown]
  - Expired product administered [Unknown]
